FAERS Safety Report 6087945-4 (Version None)
Quarter: 2009Q1

REPORT INFORMATION
  Report Type: 
  Country: None (occurrence: None)
  Receive Date: 20090219
  Receipt Date: 20090204
  Transmission Date: 20090719
  Serious: No
  Sender: FDA-Public Use
  Company Number: US025428

PATIENT
  Sex: Male

DRUGS (3)
  1. FENTORA [Suspect]
     Indication: LEUKAEMIA
     Dosage: 800 UG SUBLINGUAL
     Route: 060
     Dates: start: 20090204
  2. AVINZA [Concomitant]
  3. OXYCONTIN [Concomitant]

REACTIONS (3)
  - DRUG INEFFECTIVE [None]
  - DRUG PRESCRIBING ERROR [None]
  - INCORRECT ROUTE OF DRUG ADMINISTRATION [None]
